FAERS Safety Report 19291370 (Version 1)
Quarter: 2021Q2

REPORT INFORMATION
  Report Type: Spontaneous
  Country: ES (occurrence: ES)
  Receive Date: 20210523
  Receipt Date: 20210523
  Transmission Date: 20210717
  Serious: Yes (Other)
  Sender: FDA-Public Use
  Company Number: ES-TEVA-2021-ES-1913445

PATIENT
  Age: 70 Year
  Sex: Female

DRUGS (1)
  1. RESLIZUMAB [Suspect]
     Active Substance: RESLIZUMAB
     Indication: ASTHMA
     Dosage: 175MG EVERY 4 WEEKS
     Route: 042
     Dates: start: 20190516, end: 20210323

REACTIONS (3)
  - Osteoarthritis [Not Recovered/Not Resolved]
  - Pain in extremity [Not Recovered/Not Resolved]
  - Soft tissue disorder [Not Recovered/Not Resolved]

NARRATIVE: CASE EVENT DATE: 20210101
